FAERS Safety Report 8076145-4 (Version None)
Quarter: 2012Q1

REPORT INFORMATION
  Report Type: 
  Country: None (occurrence: None)
  Receive Date: 20120127
  Receipt Date: 20111026
  Transmission Date: 20120608
  Serious: No
  Sender: FDA-Public Use
  Company Number: US-GLAXOSMITHKLINE-A0951561A

PATIENT
  Age: 58 Year
  Sex: Male

DRUGS (4)
  1. FENTANYL [Concomitant]
     Indication: BONE PAIN
     Dosage: 200MCG PER DAY
     Route: 062
  2. UNSPECIFIED MEDICATION [Suspect]
     Indication: PRODUCT USED FOR UNKNOWN INDICATION
     Route: 065
  3. WELLBUTRIN [Suspect]
     Indication: PRODUCT USED FOR UNKNOWN INDICATION
     Dosage: 300MGD PER DAY
     Route: 048
  4. DILAUDID [Concomitant]
     Indication: BONE PAIN
     Dosage: 24MG UNKNOWN
     Route: 065

REACTIONS (2)
  - THERAPEUTIC RESPONSE UNEXPECTED [None]
  - OFF LABEL USE [None]
